FAERS Safety Report 4860756-0 (Version None)
Quarter: 2005Q4

REPORT INFORMATION
  Report Type: 
  Country: None (occurrence: None)
  Receive Date: 20051220
  Receipt Date: 20030210
  Transmission Date: 20060501
  Serious: Yes (Hospitalization)
  Sender: FDA-Public Use
  Company Number: US-BRISTOL-MYERS SQUIBB COMPANY-12182044

PATIENT
  Age: 84 Year
  Sex: Female

DRUGS (11)
  1. TEQUIN [Suspect]
     Indication: PNEUMONIA
     Route: 048
     Dates: start: 20020710, end: 20020717
  2. GLYBURIDE [Suspect]
     Indication: DIABETES MELLITUS NON-INSULIN-DEPENDENT
     Dosage: THERAPY INTERRUPTED ON 7/10/02, DOSE REDUCED TO 1.25 MG B.I.D. ON 7/14/02.
     Route: 048
     Dates: end: 20020714
  3. METFORMIN HCL [Concomitant]
     Indication: DIABETES MELLITUS NON-INSULIN-DEPENDENT
     Dosage: THERAPY WAS INTERRUPTED 7/4/02, RESTARTED 7/5/02.
  4. VITAMIN D [Concomitant]
     Dates: start: 20020709, end: 20020714
  5. CALCIUM CARBONATE [Concomitant]
     Route: 048
     Dates: start: 20020709, end: 20020714
  6. RAMIPRIL [Concomitant]
     Dosage: INITIATED AT 5 MG DAILY, INCREASED TO 10 MG DAILY 7/8/02.
     Route: 048
     Dates: start: 20020702, end: 20020714
  7. ASPIRIN [Concomitant]
     Dates: start: 20020710, end: 20020714
  8. MAGNESIUM HYDROXIDE TAB [Concomitant]
     Dosage: DOSAGE FORM = 15-30 LAMDA P PRN
     Route: 048
     Dates: end: 20020714
  9. ACETAMINOPHEN [Concomitant]
     Dosage: DOSAGE FORM = 325-650 MG Q 4 HOURS PRN
     Route: 048
     Dates: start: 20020702, end: 20020714
  10. DALTEPARIN [Concomitant]
     Dosage: DOSAGE FORM = U
     Route: 058
     Dates: start: 20020701, end: 20020717
  11. RIFAMPIN [Concomitant]
     Route: 048
     Dates: start: 20020709, end: 20020714

REACTIONS (1)
  - HYPOGLYCAEMIA [None]
